FAERS Safety Report 10029513 (Version 1)
Quarter: 2014Q1

REPORT INFORMATION
  Report Type: Spontaneous
  Country: US (occurrence: None)
  Receive Date: 20140320
  Receipt Date: 20140320
  Transmission Date: 20141002
  Serious: Yes (Life-Threatening)
  Sender: FDA-Public Use
  Company Number: None

PATIENT
  Age: 62 Year
  Sex: Female
  Weight: 64.41 kg

DRUGS (1)
  1. BENICAR [Suspect]
     Indication: HYPERTENSION
     Dosage: 40 MG 1 TABLET EVERDAY BY MOUTH
     Route: 048
     Dates: start: 20090319, end: 20090819

REACTIONS (7)
  - Nausea [None]
  - Asthenia [None]
  - General physical health deterioration [None]
  - Malaise [None]
  - Diarrhoea [None]
  - Weight decreased [None]
  - Vomiting [None]
